FAERS Safety Report 13398962 (Version 2)
Quarter: 2017Q2

REPORT INFORMATION
  Report Type: Spontaneous
  Country: ES (occurrence: ES)
  Receive Date: 20170404
  Receipt Date: 20170419
  Transmission Date: 20170830
  Serious: Yes (Hospitalization)
  Sender: FDA-Public Use
  Company Number: ES-AMGEN-ESPSP2017042503

PATIENT
  Age: 67 Year
  Sex: Female

DRUGS (4)
  1. ACOXXEL [Concomitant]
     Active Substance: ETORICOXIB
     Indication: RHEUMATOID ARTHRITIS
     Dosage: 90 MG, 1X/DAY (ONE TABLET OF 90 MG EVERY 24 HOURS)
  2. PREDNISONE. [Concomitant]
     Active Substance: PREDNISONE
     Indication: RHEUMATOID ARTHRITIS
     Dosage: 10 MG, 1X/DAY (ONE TABLET OF 10 MG EVERY 24 HOURS)
  3. VALTREX [Concomitant]
     Active Substance: VALACYCLOVIR HYDROCHLORIDE
     Dosage: 1 DF, 1X/DAY (ONE TABLET EVERY 24 HOURS)
  4. ENBREL [Suspect]
     Active Substance: ETANERCEPT
     Indication: RHEUMATOID ARTHRITIS
     Dosage: 50 MG, WEEKLY (ON THURSDAY)
     Route: 058
     Dates: start: 201702

REACTIONS (4)
  - Dizziness [Recovering/Resolving]
  - Asthenopia [Recovering/Resolving]
  - Tremor [Recovering/Resolving]
  - Mobility decreased [Recovering/Resolving]

NARRATIVE: CASE EVENT DATE: 2017
